FAERS Safety Report 6844766-X (Version None)
Quarter: 2010Q3

REPORT INFORMATION
  Report Type: 
  Country: None (occurrence: None)
  Receive Date: 20100715
  Receipt Date: 20100707
  Transmission Date: 20110219
  Serious: Yes (Death)
  Sender: FDA-Public Use
  Company Number: GXKR2010CZ06973

PATIENT
  Age: 56 Year
  Sex: Female

DRUGS (4)
  1. CARBOPLATIN [Suspect]
     Indication: NON-HODGKIN'S LYMPHOMA
     Dosage: UNK
     Route: 065
     Dates: start: 20040101
  2. ETOPOSIDE [Suspect]
     Indication: NON-HODGKIN'S LYMPHOMA
     Dosage: UNK
     Route: 065
     Dates: start: 20040101
  3. RITUXIMAB [Suspect]
     Indication: NON-HODGKIN'S LYMPHOMA
     Dosage: UNK
     Route: 065
     Dates: start: 20040101
  4. IFOSFAMIDE [Suspect]
     Dosage: UNK
     Route: 065
     Dates: start: 20040101

REACTIONS (12)
  - ACUTE HEPATIC FAILURE [None]
  - ASCITES [None]
  - COMA HEPATIC [None]
  - DECREASED APPETITE [None]
  - FATIGUE [None]
  - HEPATIC ENCEPHALOPATHY [None]
  - HEPATITIS B [None]
  - HEPATITIS CHOLESTATIC [None]
  - JAUNDICE [None]
  - OEDEMA PERIPHERAL [None]
  - RENAL FAILURE [None]
  - VARICES OESOPHAGEAL [None]
